FAERS Safety Report 10675078 (Version 2)
Quarter: 2015Q1

REPORT INFORMATION
  Report Type: Spontaneous
  Country: US (occurrence: US)
  Receive Date: 20141224
  Receipt Date: 20150323
  Transmission Date: 20150720
  Serious: Yes (Hospitalization)
  Sender: FDA-Public Use
  Company Number: US-ELI_LILLY_AND_COMPANY-US201412008756

PATIENT
  Sex: Male

DRUGS (5)
  1. ADCIRCA [Suspect]
     Active Substance: TADALAFIL
     Indication: PULMONARY ARTERIAL HYPERTENSION
     Dosage: 40 MG, QD
     Dates: start: 20140504, end: 20141215
  2. ADCIRCA [Suspect]
     Active Substance: TADALAFIL
     Indication: SCIMITAR SYNDROME
  3. ADCIRCA [Suspect]
     Active Substance: TADALAFIL
     Indication: CARDIAC DISORDER
  4. LASIX [Concomitant]
     Active Substance: FUROSEMIDE
  5. ATORVASTATIN CALCIUM. [Concomitant]
     Active Substance: ATORVASTATIN CALCIUM

REACTIONS (3)
  - Pneumonia [Recovered/Resolved]
  - Conjunctivitis [Recovered/Resolved]
  - Hearing impaired [Recovered/Resolved]
